FAERS Safety Report 11980598 (Version 1)
Quarter: 2016Q1

REPORT INFORMATION
  Report Type: Spontaneous
  Country: US (occurrence: US)
  Receive Date: 20160129
  Receipt Date: 20160129
  Transmission Date: 20160526
  Serious: No
  Sender: FDA-Public Use
  Company Number: US-009507513-1601USA011145

PATIENT
  Age: 18 Year
  Sex: Female
  Weight: 95.24 kg

DRUGS (1)
  1. NEXPLANON [Suspect]
     Active Substance: ETONOGESTREL
     Indication: CONTRACEPTION
     Dosage: 68 MG, 1 ROD EVERY THREE YEARS
     Route: 059
     Dates: start: 20150601

REACTIONS (2)
  - Menorrhagia [Unknown]
  - Complication associated with device [Not Recovered/Not Resolved]
